FAERS Safety Report 5703019-3 (Version None)
Quarter: 2008Q2

REPORT INFORMATION
  Report Type: 
  Country: None (occurrence: None)
  Receive Date: 20080411
  Receipt Date: 20080401
  Transmission Date: 20081010
  Serious: Yes (Death)
  Sender: FDA-Public Use
  Company Number: JP-ROCHE-555961

PATIENT
  Sex: Male
  Weight: 54 kg

DRUGS (7)
  1. PEGASYS [Suspect]
     Route: 058
     Dates: start: 20080305, end: 20080312
  2. PRECIPITATED CALCIUM CARBONATE [Concomitant]
     Dosage: FORM: ORAL FORMULATION (NOT OTHERWISE SPECIFIED).
     Route: 048
     Dates: end: 20080317
  3. HYPOCA [Concomitant]
     Route: 048
     Dates: end: 20080317
  4. DIOVAN [Concomitant]
     Route: 048
     Dates: end: 20080317
  5. AMLODIN [Concomitant]
     Route: 048
     Dates: end: 20080317
  6. PLATIBIT [Concomitant]
     Route: 048
     Dates: end: 20080317
  7. GASPORT-D [Concomitant]
     Route: 048
     Dates: end: 20080317

REACTIONS (1)
  - BRAIN STEM HAEMORRHAGE [None]
